FAERS Safety Report 22063395 (Version 2)
Quarter: 2023Q2

REPORT INFORMATION
  Report Type: Spontaneous
  Country: US (occurrence: US)
  Receive Date: 20230306
  Receipt Date: 20230503
  Transmission Date: 20230721
  Serious: No
  Sender: FDA-Public Use
  Company Number: US-TEVA-2023-US-2858846

PATIENT

DRUGS (1)
  1. METRONIDAZOLE [Suspect]
     Active Substance: METRONIDAZOLE
     Indication: Product used for unknown indication
     Dosage: 1000 MILLIGRAM DAILY;
     Route: 048

REACTIONS (7)
  - Gastrooesophageal reflux disease [Unknown]
  - Glossitis [Unknown]
  - Throat irritation [Unknown]
  - Dysgeusia [Unknown]
  - Product solubility abnormal [Unknown]
  - Product quality issue [Unknown]
  - Incorrect dose administered [Unknown]
